FAERS Safety Report 18882097 (Version 1)
Quarter: 2021Q1

REPORT INFORMATION
  Report Type: Spontaneous
  Country: US (occurrence: US)
  Receive Date: 20210212
  Receipt Date: 20210212
  Transmission Date: 20210420
  Serious: Yes (Hospitalization, Other)
  Sender: FDA-Public Use
  Company Number: US-AMGEN-USASP2021019396

PATIENT
  Age: 79 Year
  Sex: Male

DRUGS (13)
  1. DENOSUMAB [Concomitant]
     Active Substance: DENOSUMAB
     Indication: PROPHYLAXIS
     Dosage: 120 MILLIGRAM  (1 IN 1 M)
     Route: 058
  2. NACL [Concomitant]
     Active Substance: SODIUM CHLORIDE
     Indication: SUPPORTIVE CARE
     Dosage: 2000 MILLIGRAM, QD
     Route: 042
     Dates: start: 20201121, end: 20201121
  3. ONDANSETRON [Concomitant]
     Active Substance: ONDANSETRON
     Dosage: 8 MILLIGRAM, QD
     Route: 042
     Dates: start: 20201029, end: 20201030
  4. ACYCLOVIR [ACICLOVIR] [Concomitant]
     Active Substance: ACYCLOVIR
     Indication: ANTIVIRAL PROPHYLAXIS
     Dosage: UNK
     Route: 048
  5. ONDANSETRON [Concomitant]
     Active Substance: ONDANSETRON
     Indication: PROPHYLAXIS OF NAUSEA AND VOMITING
     Dosage: 8 MILLIGRAM, QD
     Route: 042
     Dates: start: 20201022, end: 20201023
  6. CARFILZOMIB [Suspect]
     Active Substance: CARFILZOMIB
     Indication: PLASMA CELL MYELOMA
     Dosage: (40 MG, 1  IN 1 DAY)
     Route: 042
     Dates: start: 20201022, end: 20201023
  7. POLYTRIM [Concomitant]
     Active Substance: POLYMYXIN B SULFATE\TRIMETHOPRIM SULFATE
     Indication: CONJUNCTIVITIS
     Dosage: UNK ,1 GTT (QID)
     Route: 047
     Dates: start: 20201121
  8. POTASSIUM CHLORIDE. [Concomitant]
     Active Substance: POTASSIUM CHLORIDE
     Indication: BLOOD POTASSIUM DECREASED
     Dosage: 40 MILLIEQUIVALENT (20 MILLIEQUIVALENT 2 IN 1 DAY)
     Route: 048
     Dates: start: 20201022, end: 20201022
  9. CARFILZOMIB [Suspect]
     Active Substance: CARFILZOMIB
     Dosage: (50 MG, 1  IN 1 DAY)
     Route: 042
     Dates: start: 20201029, end: 20201030
  10. ONDANSETRON [Concomitant]
     Active Substance: ONDANSETRON
     Dosage: 8 MILLIGRAM, QD
     Route: 042
     Dates: start: 20201112, end: 20201113
  11. ACETAMINOPHEN. [Concomitant]
     Active Substance: ACETAMINOPHEN
     Indication: PRODUCT USED FOR UNKNOWN INDICATION
     Dosage: UNK
     Route: 048
  12. NACL [Concomitant]
     Active Substance: SODIUM CHLORIDE
     Indication: FLUID REPLACEMENT
     Dosage: 250 MILLIGRAM, AS NECESSARY
     Route: 042
     Dates: start: 20201029, end: 20201029
  13. CARFILZOMIB [Suspect]
     Active Substance: CARFILZOMIB
     Dosage: (100 MG, 1  IN 1 DAY)
     Route: 042
     Dates: start: 20201112, end: 20201113

REACTIONS (2)
  - Anaemia [Recovered/Resolved with Sequelae]
  - Pneumonia [Recovered/Resolved with Sequelae]

NARRATIVE: CASE EVENT DATE: 20201121
